FAERS Safety Report 7553108-6 (Version None)
Quarter: 2011Q2

REPORT INFORMATION
  Report Type: 
  Country: None (occurrence: None)
  Receive Date: 20110616
  Receipt Date: 20091119
  Transmission Date: 20111010
  Serious: Yes (Hospitalization, Other)
  Sender: FDA-Public Use
  Company Number: US-BAYER-200939930NA

PATIENT
  Age: 65 Year
  Sex: Male
  Weight: 81 kg

DRUGS (23)
  1. HEPARIN [Concomitant]
     Dosage: UNK
     Route: 042
     Dates: start: 20040722
  2. ACETYLSALICYLIC ACID SRT [Concomitant]
     Dosage: 325 MG, UNK
     Route: 048
     Dates: start: 19930101
  3. AMIODARONE HCL [Concomitant]
     Dosage: 400 MG, BID
     Route: 048
     Dates: start: 20040724
  4. VISIPAQUE [IODINE,IODIXANOL] [Concomitant]
     Dosage: 50 ML, UNK
  5. TRASYLOL [Suspect]
     Indication: CORONARY ARTERY BYPASS
     Dosage: 1 ML
     Route: 042
     Dates: start: 20040727
  6. LASIX [Concomitant]
     Indication: FLUID RETENTION
     Dosage: 40 MG, QD
     Route: 048
     Dates: start: 20030101
  7. LIDOCAINE [Concomitant]
     Dosage: 100 MG, UNK
     Route: 042
     Dates: start: 20040727, end: 20040727
  8. VANCOMYCIN [Concomitant]
     Dosage: 1 G, UNK
     Route: 042
     Dates: start: 20040727, end: 20040727
  9. TRASYLOL [Suspect]
     Dosage: 199 ML LOADING DOSE
     Route: 042
     Dates: start: 20040727, end: 20040727
  10. NORVASC [Concomitant]
     Dosage: 10 MG, QD
     Route: 048
     Dates: start: 20030101
  11. FENTANYL-100 [Concomitant]
     Dosage: UNK
     Route: 042
     Dates: start: 20040727, end: 20040727
  12. COREG [Concomitant]
     Indication: HYPERTENSION
     Dosage: 6.25 MG, BID
     Route: 048
     Dates: start: 20040723
  13. PROTAMINE SULFATE [Concomitant]
     Dosage: UNK
     Route: 042
     Dates: start: 20040727, end: 20040727
  14. TRASYLOL [Suspect]
  15. CEFUROXIME [Concomitant]
     Dosage: 1.5 G, UNK
     Route: 042
     Dates: start: 20040727, end: 20040727
  16. ETOMIDATE [Concomitant]
     Dosage: UNK
     Route: 042
     Dates: start: 20040727, end: 20040727
  17. TOPROL-XL [Concomitant]
     Indication: CHEST PAIN
     Dosage: 25 UNK, UNK
  18. SOLU-MEDROL [Concomitant]
     Dosage: 1 G, UNK
     Route: 042
     Dates: start: 20040727, end: 20040727
  19. VERSED [Concomitant]
     Dosage: 2-5 MG
     Route: 042
     Dates: start: 20040727, end: 20040727
  20. APRESOLINE [Concomitant]
     Indication: HYPERTENSION
  21. OPTIRAY 350 [IODINE,IOVERSOL] [Concomitant]
     Dosage: 250 ML
  22. TRASYLOL [Suspect]
     Dosage: 50ML/HOUR INFUSION
     Route: 042
     Dates: start: 20040727, end: 20040727
  23. VYTORIN [Concomitant]
     Indication: BLOOD CHOLESTEROL INCREASED

REACTIONS (9)
  - RENAL FAILURE [None]
  - RENAL INJURY [None]
  - ANXIETY [None]
  - ANHEDONIA [None]
  - UNEVALUABLE EVENT [None]
  - FEAR [None]
  - DEPRESSION [None]
  - INJURY [None]
  - PAIN [None]
